FAERS Safety Report 9789230 (Version 1)
Quarter: 2013Q4

REPORT INFORMATION
  Report Type: Spontaneous
  Country: US (occurrence: US)
  Receive Date: 20131230
  Receipt Date: 20131230
  Transmission Date: 20140711
  Serious: No
  Sender: FDA-Public Use
  Company Number: US-BAXTER-2013BAX025205

PATIENT
  Sex: Male

DRUGS (2)
  1. ARALAST NP [Suspect]
     Indication: PRODUCT USED FOR UNKNOWN INDICATION
     Route: 065
     Dates: start: 20130318
  2. ARALAST NP [Suspect]
     Route: 065

REACTIONS (3)
  - Headache [Unknown]
  - Rash [Unknown]
  - Dyspnoea [Unknown]
